FAERS Safety Report 20064240 (Version 3)
Quarter: 2022Q2

REPORT INFORMATION
  Report Type: Report from Study
  Country: CO (occurrence: CO)
  Receive Date: 20211112
  Receipt Date: 20220517
  Transmission Date: 20220720
  Serious: Yes (Hospitalization, Disabling, Other)
  Sender: FDA-Public Use
  Company Number: CO-SAARTEMIS-SAC202011060122

PATIENT
  Age: 49 Year
  Sex: Female

DRUGS (1)
  1. AGALSIDASE BETA [Suspect]
     Active Substance: AGALSIDASE BETA
     Indication: Fabry^s disease
     Dosage: 70 MG, Q15D (1 VIAL OF 35 MG AND 6 VIALS 5MG, Q15D)
     Route: 042
     Dates: start: 20130930

REACTIONS (19)
  - COVID-19 [Recovering/Resolving]
  - SARS-CoV-2 test positive [Recovering/Resolving]
  - Asthenia [Recovering/Resolving]
  - Choking [Recovering/Resolving]
  - Arrhythmia [Unknown]
  - Medical device implantation [Recovering/Resolving]
  - Colitis ulcerative [Recovering/Resolving]
  - Abdominal pain [Recovered/Resolved]
  - Inflammation [Recovering/Resolving]
  - Haematochezia [Recovered/Resolved]
  - Swelling [Recovering/Resolving]
  - Condition aggravated [Recovering/Resolving]
  - Procedural pain [Recovering/Resolving]
  - Influenza like illness [Not Recovered/Not Resolved]
  - Cheilitis [Not Recovered/Not Resolved]
  - Nasal congestion [Not Recovered/Not Resolved]
  - Diarrhoea [Recovered/Resolved]
  - Vomiting [Recovered/Resolved]
  - Abdominal pain [Recovered/Resolved]

NARRATIVE: CASE EVENT DATE: 20201105
